FAERS Safety Report 8400400-9 (Version None)
Quarter: 2012Q2

REPORT INFORMATION
  Report Type: 
  Country: None (occurrence: None)
  Receive Date: 20120531
  Receipt Date: 20120529
  Transmission Date: 20120825
  Serious: Yes (Death, Hospitalization)
  Sender: FDA-Public Use
  Company Number: GR-ABBOTT-12P-066-0939748-00

PATIENT
  Age: 77 Year
  Sex: Male
  Weight: 65 kg

DRUGS (5)
  1. AMLODIPINE [Concomitant]
     Indication: HYPERTENSION
     Route: 048
     Dates: start: 19900101, end: 20120101
  2. TIOTROPIUM [Concomitant]
     Indication: CHRONIC OBSTRUCTIVE PULMONARY DISEASE
     Route: 055
     Dates: start: 20000101, end: 20120101
  3. ZEMPLAR [Suspect]
     Indication: HYPERPARATHYROIDISM SECONDARY
     Dosage: 1/2 AMP TWICE PER WEEK
     Route: 042
     Dates: start: 20111116, end: 20120519
  4. UNKNOWN ACE INHIBITORS [Concomitant]
     Indication: HYPERTENSION
     Route: 048
     Dates: start: 19900101, end: 20120101
  5. ERYTHROPOETIN [Concomitant]
     Indication: RENAL FAILURE CHRONIC
     Route: 042
     Dates: start: 20040101, end: 20120101

REACTIONS (3)
  - ABDOMINAL PAIN [None]
  - KIDNEY RUPTURE [None]
  - PERITONEAL HAEMORRHAGE [None]
